FAERS Safety Report 14747341 (Version 2)
Quarter: 2018Q2

REPORT INFORMATION
  Report Type: Spontaneous
  Country: JP (occurrence: JP)
  Receive Date: 20180411
  Receipt Date: 20180423
  Transmission Date: 20180711
  Serious: Yes (Hospitalization)
  Sender: FDA-Public Use
  Company Number: JP-ELI_LILLY_AND_COMPANY-JP201804003858

PATIENT
  Age: 75 Year
  Sex: Female

DRUGS (5)
  1. LEVOFOLINATE CALCIUM [Concomitant]
     Active Substance: LEVOLEUCOVORIN CALCIUM
     Indication: COLON CANCER
     Dosage: 150 MG/M2, CYCLICAL
     Route: 042
     Dates: start: 20180308, end: 20180322
  2. FLUOROURACIL. [Concomitant]
     Active Substance: FLUOROURACIL
     Indication: COLON CANCER
     Dosage: 400MG/M2, CYCLICAL
     Route: 040
     Dates: start: 20180308, end: 20180324
  3. FLUOROURACIL. [Concomitant]
     Active Substance: FLUOROURACIL
     Dosage: 2400 MG/M2, CYCLICAL
     Route: 041
     Dates: start: 20180308, end: 20180324
  4. IRINOTECAN HYDROCHLORIDE. [Concomitant]
     Active Substance: IRINOTECAN HYDROCHLORIDE
     Indication: COLON CANCER
     Dosage: 150 MG/M2, CYCLICAL
     Route: 042
     Dates: start: 20180308, end: 20180322
  5. CYRAMZA [Suspect]
     Active Substance: RAMUCIRUMAB
     Indication: COLON CANCER
     Dosage: 8 MG/M2, CYCLICAL
     Route: 042
     Dates: start: 20180308, end: 20180322

REACTIONS (3)
  - Stomatitis [Recovering/Resolving]
  - Malignant neoplasm progression [Unknown]
  - Glossitis [Recovering/Resolving]

NARRATIVE: CASE EVENT DATE: 20180329
